FAERS Safety Report 6178929-6 (Version None)
Quarter: 2009Q2

REPORT INFORMATION
  Report Type: 
  Country: None (occurrence: None)
  Receive Date: 20090505
  Receipt Date: 20090424
  Transmission Date: 20091009
  Serious: Yes (Death, Hospitalization)
  Sender: FDA-Public Use
  Company Number: FR-RANBAXY-2009RR-23716

PATIENT
  Age: 69 Year
  Sex: Female

DRUGS (5)
  1. PARACETAMOL [Suspect]
  2. STRONTIUM RANELATE [Suspect]
  3. CALCIUM [Suspect]
  4. COLECALCIFEROL [Suspect]
  5. DICLOFENAC SODIUM [Suspect]

REACTIONS (1)
  - DRUG RASH WITH EOSINOPHILIA AND SYSTEMIC SYMPTOMS [None]
